FAERS Safety Report 4313809-X (Version None)
Quarter: 2004Q1

REPORT INFORMATION
  Report Type: 
  Country: None (occurrence: None)
  Receive Date: 20040304
  Receipt Date: 20031230
  Transmission Date: 20041129
  Serious: Yes (Hospitalization)
  Sender: FDA-Public Use
  Company Number: 2003122959

PATIENT
  Age: 38 Year
  Sex: Female
  Weight: 88.905 kg

DRUGS (11)
  1. GEODON [Suspect]
     Indication: MANIA
     Dates: end: 20031201
  2. LITHIUM (LITHIUM) (LITHIUM) [Suspect]
     Indication: ILL-DEFINED DISORDER
  3. DIPHENHYDRAMINE HCL [Suspect]
     Indication: HYPERSENSITIVITY
  4. PSEUDOEPHEDRINE HCL [Suspect]
     Indication: MENIERE'S DISEASE
  5. FLUOXETINE HCL [Suspect]
     Indication: SLEEP DISORDER
  6. QUETIAPINE FUMARATE (QUETIAPINE FUMARATE) [Suspect]
     Indication: SLEEP DISORDER
  7. TOPIRAMATE [Concomitant]
  8. VALPROATE SODIUM [Concomitant]
  9. TRAZODONE HCL [Concomitant]
  10. HYOSCYAMINE (HYOSCYAMINE) [Concomitant]
  11. ANTIDEPRESSANTS [Concomitant]

REACTIONS (16)
  - AKATHISIA [None]
  - ASTHENIA [None]
  - ATAXIA [None]
  - CONFUSIONAL STATE [None]
  - DRUG INEFFECTIVE [None]
  - GAIT DISTURBANCE [None]
  - HYPOMANIA [None]
  - MALAISE [None]
  - MANIA [None]
  - MASKED FACIES [None]
  - MEMORY IMPAIRMENT [None]
  - MENIERE'S DISEASE [None]
  - MUSCLE TWITCHING [None]
  - MYALGIA [None]
  - PAIN OF SKIN [None]
  - SLEEP DISORDER [None]
